FAERS Safety Report 8180637-7 (Version None)
Quarter: 2012Q1

REPORT INFORMATION
  Report Type: 
  Country: None (occurrence: None)
  Receive Date: 20120302
  Receipt Date: 20120228
  Transmission Date: 20120608
  Serious: Yes (Other)
  Sender: FDA-Public Use
  Company Number: US-PFIZER INC-2012014262

PATIENT
  Sex: Male

DRUGS (1)
  1. PROTONIX [Suspect]
     Dosage: UNK, 2X/DAY

REACTIONS (2)
  - DRUG SCREEN FALSE POSITIVE [None]
  - TRANSIENT GLOBAL AMNESIA [None]
